FAERS Safety Report 23036599 (Version 1)
Quarter: 2023Q4

REPORT INFORMATION
  Report Type: Spontaneous
  Country: US (occurrence: US)
  Receive Date: 20231006
  Receipt Date: 20231006
  Transmission Date: 20240109
  Serious: No
  Sender: FDA-Public Use
  Company Number: US-TOLMAR, INC.-23US043470

PATIENT
  Age: 27 Year
  Sex: Male

DRUGS (2)
  1. KETOCONAZOLE [Suspect]
     Active Substance: KETOCONAZOLE
     Indication: Hair disorder
     Dosage: UNK
     Route: 003
  2. BIOTIN [Concomitant]
     Active Substance: BIOTIN
     Indication: Product used for unknown indication

REACTIONS (3)
  - Pruritus [Recovered/Resolved]
  - Alopecia [Recovered/Resolved with Sequelae]
  - Off label use [Recovered/Resolved]
